FAERS Safety Report 9821642 (Version 2)
Quarter: 2014Q1

REPORT INFORMATION
  Report Type: Spontaneous
  Country: US (occurrence: US)
  Receive Date: 20140116
  Receipt Date: 20140224
  Transmission Date: 20141002
  Serious: No
  Sender: FDA-Public Use
  Company Number: US-BIOGENIDEC-2014BI000891

PATIENT
  Age: 51 Year
  Sex: Male
  Weight: 82 kg

DRUGS (4)
  1. TECFIDERA [Suspect]
     Indication: MULTIPLE SCLEROSIS
     Route: 048
     Dates: start: 20131110
  2. AMPYRA [Concomitant]
     Indication: GAIT DISTURBANCE
     Route: 048
     Dates: start: 20131110
  3. ALEVE [Concomitant]
  4. LORAZEPAM [Concomitant]

REACTIONS (4)
  - Insomnia [Unknown]
  - Paraesthesia [Unknown]
  - Drug ineffective [Unknown]
  - Feeling hot [Unknown]
